FAERS Safety Report 4767179-3 (Version None)
Quarter: 2005Q3

REPORT INFORMATION
  Report Type: 
  Country: None (occurrence: None)
  Receive Date: 20050909
  Receipt Date: 20050909
  Transmission Date: 20060218
  Serious: Yes (Hospitalization)
  Sender: FDA-Public Use
  Company Number: None

PATIENT
  Age: 76 Year
  Sex: Male
  Weight: 85.2762 kg

DRUGS (2)
  1. WARFARIN  7.5MG [Suspect]
     Indication: AORTIC VALVE REPLACEMENT
     Dosage: 7.5 MG M/W/TH/S/S  11.25 MG F, TU  PO
     Route: 048
     Dates: start: 19941121, end: 20050908
  2. ENOXAPARIN SODIUM [Suspect]
     Indication: AORTIC VALVE REPLACEMENT
     Dosage: 80 MG BID SQ
     Route: 058
     Dates: start: 20050901, end: 20050907

REACTIONS (6)
  - COAGULOPATHY [None]
  - DIZZINESS POSTURAL [None]
  - GASTROINTESTINAL HAEMORRHAGE [None]
  - HAEMATOCHEZIA [None]
  - POST PROCEDURAL COMPLICATION [None]
  - RECTAL HAEMORRHAGE [None]
